FAERS Safety Report 8847420 (Version 1)
Quarter: 2012Q4

REPORT INFORMATION
  Report Type: 
  Country: US (occurrence: US)
  Receive Date: 20121018
  Receipt Date: 20121018
  Transmission Date: 20130627
  Serious: No
  Sender: FDA-Public Use
  Company Number: US-TEVA-364918USA

PATIENT
  Age: 60 Year
  Sex: Female
  Weight: 68.55 kg

DRUGS (8)
  1. AZILECT [Suspect]
     Indication: PARKINSON^S DISEASE
     Dosage: daily
     Route: 048
     Dates: start: 20121005, end: 20121011
  2. AZILECT [Suspect]
     Route: 048
     Dates: start: 20121012, end: 20121014
  3. SYNTHROID [Concomitant]
     Indication: HYPOTHYROIDISM
     Dosage: daily
     Route: 048
  4. ENABLEX [Concomitant]
     Indication: BLADDER DISORDER
     Dosage: daily
     Route: 048
  5. ROBAXIN [Concomitant]
     Indication: MUSCLE RELAXANT THERAPY
     Dosage: 500 mg prn
     Route: 048
  6. LYRICA [Concomitant]
     Indication: NEURALGIA
     Dosage: 50 mg prn
     Route: 048
  7. IBUPROFEN [Concomitant]
     Indication: PAIN
     Dosage: 600-800 mg prn
     Route: 048
  8. SUDAFED [Concomitant]
     Indication: BLADDER DISORDER

REACTIONS (1)
  - Influenza [Not Recovered/Not Resolved]
